FAERS Safety Report 18947221 (Version 1)
Quarter: 2021Q1

REPORT INFORMATION
  Report Type: Spontaneous
  Country: US (occurrence: US)
  Receive Date: 20210226
  Receipt Date: 20210226
  Transmission Date: 20210420
  Serious: No
  Sender: FDA-Public Use
  Company Number: US-SA-2021SA065326

PATIENT
  Sex: Female

DRUGS (5)
  1. AIMOVIG [Concomitant]
     Active Substance: ERENUMAB-AOOE
  2. UBRELVY [Concomitant]
     Active Substance: UBROGEPANT
  3. DUPIXENT [Suspect]
     Active Substance: DUPILUMAB
     Indication: DERMATITIS ATOPIC
     Dosage: 300 MG, QOW
     Route: 058
     Dates: start: 20200422
  4. PREDNISONE. [Concomitant]
     Active Substance: PREDNISONE
  5. DROSPIRENONE [Concomitant]
     Active Substance: DROSPIRENONE

REACTIONS (4)
  - Rash [Unknown]
  - Dermatitis atopic [Unknown]
  - Skin discomfort [Unknown]
  - Skin infection [Unknown]
